FAERS Safety Report 5291909-8 (Version None)
Quarter: 2007Q2

REPORT INFORMATION
  Report Type: 
  Country: None (occurrence: None)
  Receive Date: 20070403
  Receipt Date: 20070326
  Transmission Date: 20071010
  Serious: Yes (Death)
  Sender: FDA-Public Use
  Company Number: 238632

PATIENT
  Age: 92 Year

DRUGS (10)
  1. LUCENTIS [Suspect]
     Indication: MACULAR DEGENERATION
     Dosage: 0.5 MG, UNK, INTRAVITREAL
     Dates: start: 20070108
  2. HYDROCHLOROTHIAZIDE [Concomitant]
  3. PLAVIX [Concomitant]
  4. IMDUR [Concomitant]
  5. IMDUR [Concomitant]
  6. BAYER ASPIRIN (ASPIRIN) [Concomitant]
  7. TYLENOL ARTHRITIS (ACETAMINOPHEN) [Concomitant]
  8. ACTONEL [Concomitant]
  9. LEVOTHYROXINE SODIUM [Concomitant]
  10. VYTORIN [Concomitant]

REACTIONS (1)
  - CEREBROVASCULAR ACCIDENT [None]
